FAERS Safety Report 23090268 (Version 1)
Quarter: 2023Q4

REPORT INFORMATION
  Report Type: Spontaneous
  Country: CZ (occurrence: CZ)
  Receive Date: 20231020
  Receipt Date: 20231020
  Transmission Date: 20240110
  Serious: Yes (Other)
  Sender: FDA-Public Use
  Company Number: CZ-BAYER-2023A143915

PATIENT
  Age: 34 Year
  Sex: Female

DRUGS (1)
  1. INTERFERON BETA-1B [Suspect]
     Active Substance: INTERFERON BETA-1B
     Dosage: UNK

REACTIONS (4)
  - Multiple sclerosis relapse [None]
  - Dysaesthesia [None]
  - Paresis [None]
  - Maternal exposure during pregnancy [None]
